FAERS Safety Report 9227616 (Version 1)
Quarter: 2013Q2

REPORT INFORMATION
  Report Type: Spontaneous
  Country: US (occurrence: US)
  Receive Date: 20130412
  Receipt Date: 20130412
  Transmission Date: 20140414
  Serious: Yes (Hospitalization, Disabling)
  Sender: FDA-Public Use
  Company Number: US-SANOFI-AVENTIS-2013SA036741

PATIENT
  Age: 60 Year
  Sex: Female

DRUGS (3)
  1. LANTUS SOLOSTAR [Suspect]
     Indication: TYPE 2 DIABETES MELLITUS
     Dosage: DOSE:43 UNIT(S)
     Route: 051
     Dates: start: 201201
  2. SOLOSTAR [Suspect]
     Indication: TYPE 2 DIABETES MELLITUS
     Dates: start: 201201
  3. VANCOMYCIN [Suspect]

REACTIONS (5)
  - Disability [Not Recovered/Not Resolved]
  - Impaired driving ability [Unknown]
  - Foot operation [Unknown]
  - Arterial occlusive disease [Unknown]
  - Ulcer [Unknown]
